FAERS Safety Report 18325464 (Version 3)
Quarter: 2020Q4

REPORT INFORMATION
  Report Type: Spontaneous
  Country: CO (occurrence: CO)
  Receive Date: 20200929
  Receipt Date: 20201105
  Transmission Date: 20210113
  Serious: Yes (Hospitalization, Other)
  Sender: FDA-Public Use
  Company Number: CO-BAYER-2020-209928

PATIENT
  Age: 44 Year
  Sex: Male
  Weight: 71 kg

DRUGS (1)
  1. GADOVIST [Suspect]
     Active Substance: GADOBUTROL
     Indication: MAGNETIC RESONANCE IMAGING HEART
     Dosage: 12 ML, ONCE
     Route: 042
     Dates: start: 20200908, end: 20200908

REACTIONS (8)
  - Nausea [Recovered/Resolved]
  - Dizziness [None]
  - Hyperhidrosis [None]
  - Ventricular tachycardia [Recovered/Resolved]
  - Heart rate irregular [Recovered/Resolved]
  - Hypotension [Recovered/Resolved]
  - Circulatory collapse [Recovered/Resolved]
  - Throat tightness [Recovered/Resolved]

NARRATIVE: CASE EVENT DATE: 20200908
